FAERS Safety Report 5113900-4 (Version None)
Quarter: 2006Q3

REPORT INFORMATION
  Report Type: 
  Country: None (occurrence: None)
  Receive Date: 20060922
  Receipt Date: 20060922
  Transmission Date: 20061208
  Serious: Yes (Hospitalization)
  Sender: FDA-Public Use
  Company Number: None

PATIENT
  Age: 66 Year
  Sex: Female
  Weight: 65.318 kg

DRUGS (11)
  1. REMODULIN [Suspect]
     Indication: PULMONARY HYPERTENSION
     Dosage: 106 NG/KG/MIN
  2. LASIX [Concomitant]
  3. K-DUR 10 [Concomitant]
  4. PREMPRO [Concomitant]
  5. NORVASC [Concomitant]
  6. CORTISONE [Concomitant]
  7. HYDROCHLOROTHIAZIDE [Concomitant]
  8. ALLOPURINOL [Concomitant]
  9. SYNTHROID [Concomitant]
  10. COUMADIN [Concomitant]
  11. CIPRO [Concomitant]

REACTIONS (2)
  - CENTRAL LINE INFECTION [None]
  - PSEUDOMONAS INFECTION [None]
